FAERS Safety Report 19065556 (Version 3)
Quarter: 2021Q3

REPORT INFORMATION
  Report Type: Report from Study
  Country: BR (occurrence: BR)
  Receive Date: 20210327
  Receipt Date: 20210702
  Transmission Date: 20211014
  Serious: Yes (Life-Threatening, Other)
  Sender: FDA-Public Use
  Company Number: BR-TAKEDA-BR202001896

PATIENT
  Age: 4 Year
  Sex: Male
  Weight: 15 kg

DRUGS (19)
  1. IDURSULFASE [Suspect]
     Active Substance: IDURSULFASE
     Dosage: 2 VIAL PER INFUSION
     Route: 042
  2. IDURSULFASE [Suspect]
     Active Substance: IDURSULFASE
     Dosage: UNK, 1/WEEK
     Route: 042
     Dates: start: 201801
  3. CARVEDILOL. [Concomitant]
     Active Substance: CARVEDILOL
     Indication: CARDIAC DISORDER
     Dosage: 6.25 MILLIGRAM, Q12H
     Route: 065
  4. CARVEDILOL. [Concomitant]
     Active Substance: CARVEDILOL
     Dosage: 6.25 MILLIGRAM, Q12H
     Route: 065
     Dates: start: 2018
  5. FUROSEMIDE. [Concomitant]
     Active Substance: FUROSEMIDE
     Indication: CONGESTIVE CARDIOMYOPATHY
     Dosage: 2.5 MILLILITER, Q12H
     Route: 065
  6. CAPTOPRIL. [Concomitant]
     Active Substance: CAPTOPRIL
     Indication: CONGESTIVE CARDIOMYOPATHY
     Dosage: 3 MILLILITER, TID
     Route: 065
  7. SPIRONOLACTONE. [Concomitant]
     Active Substance: SPIRONOLACTONE
     Dosage: 25 MILLIGRAM, QD
     Route: 065
     Dates: start: 2018
  8. SPIRONOLACTONE. [Concomitant]
     Active Substance: SPIRONOLACTONE
     Indication: CARDIAC DISORDER
     Dosage: 25 MILLIGRAM, QD
     Route: 065
  9. IDURSULFASE [Suspect]
     Active Substance: IDURSULFASE
     Dosage: UNK
     Route: 065
     Dates: start: 20200113
  10. IDURSULFASE [Suspect]
     Active Substance: IDURSULFASE
     Dosage: 2 VIAL PER INFUSION
     Route: 042
     Dates: start: 201801
  11. IDURSULFASE [Suspect]
     Active Substance: IDURSULFASE
     Dosage: 2 DOSAGE FORM
     Route: 065
     Dates: start: 20200512
  12. FUROSEMIDE. [Concomitant]
     Active Substance: FUROSEMIDE
     Dosage: 40 MILLIGRAM, Q12H
     Route: 065
  13. CAPTOPRIL. [Concomitant]
     Active Substance: CAPTOPRIL
     Indication: CARDIAC DISORDER
     Dosage: 25 MILLIGRAM, Q8HR
     Route: 065
  14. IDURSULFASE [Suspect]
     Active Substance: IDURSULFASE
     Dosage: UNK UNK, 1/WEEK
     Route: 042
  15. CARVEDILOL. [Concomitant]
     Active Substance: CARVEDILOL
     Indication: CONGESTIVE CARDIOMYOPATHY
     Dosage: 6 MILLILITER, BID
     Route: 065
  16. CAPTOPRIL. [Concomitant]
     Active Substance: CAPTOPRIL
     Dosage: 25 MILLIGRAM, Q8HR
     Route: 065
     Dates: start: 2018
  17. IDURSULFASE [Suspect]
     Active Substance: IDURSULFASE
     Indication: MUCOPOLYSACCHARIDOSIS II
     Dosage: 1 VIAL PER INFUSION
     Route: 065
  18. SPIRONOLACTONE. [Concomitant]
     Active Substance: SPIRONOLACTONE
     Indication: CONGESTIVE CARDIOMYOPATHY
     Dosage: 10 MILLILITER, QD
     Route: 065
  19. IDURSULFASE [Suspect]
     Active Substance: IDURSULFASE
     Dosage: UNK, 1/WEEK
     Route: 065

REACTIONS (7)
  - Product dose omission issue [Unknown]
  - Influenza [Unknown]
  - Cardiac failure [Unknown]
  - Inappropriate schedule of product administration [Unknown]
  - Infusion related reaction [Unknown]
  - Fatigue [Recovered/Resolved]
  - Incorrect dose administered [Unknown]

NARRATIVE: CASE EVENT DATE: 2018
